FAERS Safety Report 23684177 (Version 2)
Quarter: 2024Q4

REPORT INFORMATION
  Report Type: Spontaneous
  Country: SE (occurrence: SE)
  Receive Date: 20240328
  Receipt Date: 20241128
  Transmission Date: 20250115
  Serious: Yes (Hospitalization, Other)
  Sender: ALEXION PHARMACEUTICALS
  Company Number: 2024A071071

PATIENT
  Age: 79 Year
  Weight: 83 kg

DRUGS (18)
  1. TICAGRELOR [Suspect]
     Active Substance: TICAGRELOR
     Indication: Cardiovascular event prophylaxis
  2. TICAGRELOR [Suspect]
     Active Substance: TICAGRELOR
     Indication: Acute myocardial infarction
  3. TICAGRELOR [Suspect]
     Active Substance: TICAGRELOR
  4. TICAGRELOR [Suspect]
     Active Substance: TICAGRELOR
  5. PLACEBO [Suspect]
     Active Substance: PLACEBO
     Indication: Cardiovascular disorder
  6. PLACEBO [Suspect]
     Active Substance: PLACEBO
  7. ASPIRIN [Concomitant]
     Active Substance: ASPIRIN
  8. ASPIRIN [Concomitant]
     Active Substance: ASPIRIN
     Route: 065
  9. FELODIPINE [Concomitant]
     Active Substance: FELODIPINE
  10. FELODIPINE [Concomitant]
     Active Substance: FELODIPINE
     Route: 065
  11. LOSARTAN [Concomitant]
     Active Substance: LOSARTAN
  12. LOSARTAN [Concomitant]
     Active Substance: LOSARTAN
     Route: 065
  13. ACETAMINOPHEN [Concomitant]
     Active Substance: ACETAMINOPHEN
  14. ACETAMINOPHEN [Concomitant]
     Active Substance: ACETAMINOPHEN
     Route: 065
  15. ATORVASTATIN [Concomitant]
     Active Substance: ATORVASTATIN
  16. ATORVASTATIN [Concomitant]
     Active Substance: ATORVASTATIN
     Route: 065
  17. EZETIMIBE [Concomitant]
     Active Substance: EZETIMIBE
  18. EZETIMIBE [Concomitant]
     Active Substance: EZETIMIBE
     Route: 065

REACTIONS (1)
  - Duodenal ulcer [Recovered/Resolved]
